FAERS Safety Report 8699142 (Version 8)
Quarter: 2013Q2

REPORT INFORMATION
  Report Type: Report from Study
  Country: JP (occurrence: JP)
  Receive Date: 20120802
  Receipt Date: 20130402
  Transmission Date: 20140414
  Serious: Yes (Hospitalization, Other)
  Sender: FDA-Public Use
  Company Number: JP-009507513-2012SP036333

PATIENT
  Age: 70 Year
  Sex: Male
  Weight: 61 kg

DRUGS (17)
  1. PEGINTRON [Suspect]
     Indication: CHRONIC HEPATITIS C
     Dosage: 1.5MCG/KG/WEEK
     Route: 058
     Dates: start: 20120417, end: 20120629
  2. REBETOL [Suspect]
     Indication: CHRONIC HEPATITIS C
     Dosage: CUMULATIVE DOSE: 8400 MG
     Route: 048
     Dates: start: 20120417, end: 20120510
  3. REBETOL [Suspect]
     Dosage: CUMULATIVE DOSE: 8400 MG
     Route: 048
     Dates: start: 20120511, end: 20120706
  4. TELAVIC [Suspect]
     Indication: CHRONIC HEPATITIS C
     Dosage: 1500 MG, QD
     Route: 048
     Dates: start: 20120417, end: 20120524
  5. TELAVIC [Suspect]
     Dosage: 1000 MG, QD
     Route: 048
     Dates: start: 20120525, end: 20120615
  6. TELAVIC [Suspect]
     Dosage: 1000 MG, QD
     Route: 048
     Dates: start: 20120622, end: 20120706
  7. PARIET [Concomitant]
     Indication: GASTROOESOPHAGEAL REFLUX DISEASE
     Dosage: 10 MG, QD
     Route: 048
  8. TAMSULOSIN HYDROCHLORIDE [Concomitant]
     Indication: HYPERTENSION
     Dosage: 0.2 MG, QD
     Route: 048
  9. NORVASC [Concomitant]
     Indication: HYPERTENSION
     Dosage: 2.5 MG, QD
     Route: 048
  10. FEROTYM [Concomitant]
     Indication: IRON DEFICIENCY ANAEMIA
     Dosage: 2 MG, QD
     Route: 048
  11. LIVALO [Concomitant]
     Indication: HYPERLIPIDAEMIA
     Dosage: 2 MG, QD
     Route: 048
  12. EPADEL S [Concomitant]
     Indication: HYPERLIPIDAEMIA
     Dosage: 1800 MG, QD
     Route: 048
  13. CLARITIN REDITABS [Concomitant]
     Indication: PROPHYLAXIS
     Dosage: 10 MG, QD
     Route: 048
  14. PREDONINE [Concomitant]
     Indication: RASH
     Dosage: 20 MG, QD
     Route: 048
     Dates: start: 20120604
  15. PREDONINE [Concomitant]
     Dosage: 12.5 MG, QD
     Route: 048
  16. PREDONINE [Concomitant]
     Dosage: 30 MG, QD
     Route: 048
  17. PREDONINE [Concomitant]
     Dosage: 5 MG, QD
     Route: 048
     Dates: end: 20120831

REACTIONS (4)
  - Stevens-Johnson syndrome [Recovered/Resolved]
  - Anaemia [Not Recovered/Not Resolved]
  - Platelet count decreased [None]
  - Injection site erythema [None]
